FAERS Safety Report 25600228 (Version 1)
Quarter: 2025Q3

REPORT INFORMATION
  Report Type: Spontaneous
  Country: TR (occurrence: TR)
  Receive Date: 20250724
  Receipt Date: 20250724
  Transmission Date: 20251021
  Serious: Yes (Death, Life-Threatening, Other)
  Sender: AMGEN
  Company Number: TR-AMGEN-TURSP2025141472

PATIENT
  Age: 34 Year
  Sex: Female

DRUGS (11)
  1. FILGRASTIM [Suspect]
     Active Substance: FILGRASTIM
     Indication: Neutropenia
     Route: 065
     Dates: start: 20250115
  2. METHOTREXATE [Suspect]
     Active Substance: METHOTREXATE
     Indication: Acute lymphocytic leukaemia
     Route: 029
  3. METHOTREXATE [Suspect]
     Active Substance: METHOTREXATE
     Dosage: 1000 MILLIGRAM/SQ. METER, QD
     Route: 029
     Dates: start: 20250106
  4. CYCLOPHOSPHAMIDE [Concomitant]
     Active Substance: CYCLOPHOSPHAMIDE
     Indication: Acute lymphocytic leukaemia
     Dosage: 300 MILLIGRAM/SQ. METER, QD (2X300 FOR 3 DAYS)
     Route: 065
  5. VINCRISTINE [Concomitant]
     Active Substance: VINCRISTINE
     Indication: Acute lymphocytic leukaemia
     Dosage: 2 MILLIGRAM, QD
  6. ADRIAMYCIN [Concomitant]
     Active Substance: DOXORUBICIN HYDROCHLORIDE
     Indication: Acute lymphocytic leukaemia
     Dosage: 50 MILLIGRAM/SQ. METER, QD
     Route: 065
  7. Decort [Concomitant]
     Indication: Acute lymphocytic leukaemia
     Dosage: 40 MILLIGRAM, QD (FOR 4 DAYS)
     Route: 065
  8. CYTARABINE [Concomitant]
     Active Substance: CYTARABINE
     Indication: Acute lymphocytic leukaemia
     Route: 029
  9. CYTARABINE [Concomitant]
     Active Substance: CYTARABINE
     Dosage: 3000 MILLIGRAM/SQ. METER, QD (SECOND CYCLE FOR 2 DAYS)
     Route: 029
     Dates: start: 20250106
  10. PREDNISOLONE [Concomitant]
     Active Substance: PREDNISOLONE
     Indication: Acute lymphocytic leukaemia
     Dosage: 25 MILLIGRAM/SQ. METER, QD (25X2 FOR 3 DAYS)
     Route: 065
     Dates: start: 20250106
  11. PREDNISOLONE [Concomitant]
     Active Substance: PREDNISOLONE
     Dosage: 1000 MILLIGRAM, QD (FOR 3 DAYS)
     Route: 065
     Dates: start: 20250116

REACTIONS (8)
  - Multiple organ dysfunction syndrome [Fatal]
  - Respiratory arrest [Unknown]
  - Cardiac arrest [Unknown]
  - Toxic epidermal necrolysis [Unknown]
  - Blood creatinine decreased [Unknown]
  - Blood bilirubin increased [Unknown]
  - Hypernatraemia [Unknown]
  - Pyrexia [Unknown]

NARRATIVE: CASE EVENT DATE: 20250101
